FAERS Safety Report 7235277-0 (Version None)
Quarter: 2011Q1

REPORT INFORMATION
  Report Type: 
  Country: None (occurrence: None)
  Receive Date: 20110120
  Receipt Date: 20110110
  Transmission Date: 20110831
  Serious: Yes (Hospitalization)
  Sender: FDA-Public Use
  Company Number: US-JNJFOC-20101204667

PATIENT
  Sex: Female
  Weight: 102.06 kg

DRUGS (3)
  1. HUMIRA [Suspect]
     Indication: PSORIATIC ARTHROPATHY
  2. INFLIXIMAB, RECOMBINANT [Suspect]
     Indication: PSORIATIC ARTHROPATHY
     Route: 042
  3. ETANERCEPT [Concomitant]
     Indication: PSORIATIC ARTHROPATHY

REACTIONS (3)
  - SWELLING [None]
  - PAIN [None]
  - VOMITING [None]
